FAERS Safety Report 20895494 (Version 3)
Quarter: 2022Q2

REPORT INFORMATION
  Report Type: Report from Study
  Country: DE (occurrence: DE)
  Receive Date: 20220531
  Receipt Date: 20220621
  Transmission Date: 20220720
  Serious: Yes (Life-Threatening, Hospitalization, Other)
  Sender: FDA-Public Use
  Company Number: DE-BRISTOL-MYERS SQUIBB COMPANY-BMS-2020-076672

PATIENT
  Age: 66 Year
  Sex: Female

DRUGS (2)
  1. NIVOLUMAB [Suspect]
     Active Substance: NIVOLUMAB
     Indication: Gastric cancer
     Dosage: 258.60 MILLIGRAM, Q2WK
     Route: 042
     Dates: start: 20200407, end: 20200611
  2. IPILIMUMAB [Suspect]
     Active Substance: IPILIMUMAB
     Indication: Gastric cancer
     Dosage: 86.20 MILLIGRAM, Q6WK
     Route: 042
     Dates: start: 20200407, end: 20200611

REACTIONS (3)
  - Colitis [Not Recovered/Not Resolved]
  - Ileus [Recovered/Resolved]
  - Pneumonitis aspiration [Recovered/Resolved]

NARRATIVE: CASE EVENT DATE: 20200702
